FAERS Safety Report 8402972-7 (Version None)
Quarter: 2012Q2

REPORT INFORMATION
  Report Type: 
  Country: None (occurrence: None)
  Receive Date: 20120601
  Receipt Date: 20120529
  Transmission Date: 20120825
  Serious: Yes (Other)
  Sender: FDA-Public Use
  Company Number: CN-ROCHE-1073667

PATIENT

DRUGS (1)
  1. AVASTIN [Suspect]
     Indication: RETINOPATHY OF PREMATURITY
     Route: 050

REACTIONS (3)
  - VASOCONSTRICTION [None]
  - NEOVASCULARISATION [None]
  - RETINAL DETACHMENT [None]
